FAERS Safety Report 17467179 (Version 6)
Quarter: 2023Q1

REPORT INFORMATION
  Report Type: Report from Study
  Country: GB (occurrence: GB)
  Receive Date: 20200227
  Receipt Date: 20230310
  Transmission Date: 20230418
  Serious: Yes (Hospitalization, Other)
  Sender: FDA-Public Use
  Company Number: GB-GLAXOSMITHKLINE-GB2020EME031171

PATIENT

DRUGS (2)
  1. MEPOLIZUMAB [Suspect]
     Active Substance: MEPOLIZUMAB
     Indication: Asthma
     Dosage: 100 MG, Z,4 WEEKS
     Dates: start: 20200203
  2. MEPOLIZUMAB [Suspect]
     Active Substance: MEPOLIZUMAB
     Indication: Asthma
     Dosage: UNK
     Dates: start: 201908

REACTIONS (6)
  - Dyspnoea [Unknown]
  - Peak expiratory flow rate decreased [Unknown]
  - Vomiting [Unknown]
  - Lower respiratory tract infection [Unknown]
  - Coronavirus infection [Unknown]
  - Product complaint [Unknown]

NARRATIVE: CASE EVENT DATE: 20200210
